FAERS Safety Report 8534511-4 (Version None)
Quarter: 2012Q3

REPORT INFORMATION
  Report Type: 
  Country: None (occurrence: None)
  Receive Date: 20120724
  Receipt Date: 20120712
  Transmission Date: 20120928
  Serious: Yes (Other)
  Sender: FDA-Public Use
  Company Number: GB-VERTEX PHARMACEUTICALS INC.-AE-2011-003499

PATIENT
  Sex: Male

DRUGS (3)
  1. INTERFERON [Concomitant]
     Indication: HEPATITIS C
  2. RIBAVIRIN [Concomitant]
     Indication: HEPATITIS C
  3. INCIVO (TELAPREVIR) [Suspect]
     Indication: HEPATITIS C
     Route: 048
     Dates: start: 20111003, end: 20111230

REACTIONS (5)
  - MOUTH ULCERATION [None]
  - ORAL CANDIDIASIS [None]
  - SWELLING FACE [None]
  - LOCAL SWELLING [None]
  - TOOTH ABSCESS [None]
